FAERS Safety Report 19554865 (Version 2)
Quarter: 2021Q3

REPORT INFORMATION
  Report Type: Spontaneous
  Country: FR (occurrence: FR)
  Receive Date: 20210714
  Receipt Date: 20210917
  Transmission Date: 20211014
  Serious: Yes (Other)
  Sender: FDA-Public Use
  Company Number: FR-MYLANLABS-2021M1042407

PATIENT
  Age: 7 Decade
  Sex: Male

DRUGS (4)
  1. IMIQUIMOD. [Suspect]
     Active Substance: IMIQUIMOD
     Indication: SKIN PAPILLOMA
     Dosage: TWO COURSES
     Route: 061
  2. FLUOROURACIL. [Suspect]
     Active Substance: FLUOROURACIL
     Indication: SKIN PAPILLOMA
     Dosage: UNK
     Route: 061
  3. INGENOL MEBUTATE. [Suspect]
     Active Substance: INGENOL MEBUTATE
     Indication: SKIN PAPILLOMA
     Dosage: TWO COURSES
     Route: 061
  4. RUXOLITINIB [Concomitant]
     Active Substance: RUXOLITINIB
     Indication: CHRONIC GRAFT VERSUS HOST DISEASE
     Dosage: 10 MILLIGRAM, BID
     Route: 065

REACTIONS (1)
  - Graft versus host disease in skin [Recovered/Resolved]
